FAERS Safety Report 8459994-X (Version None)
Quarter: 2012Q2

REPORT INFORMATION
  Report Type: 
  Country: None (occurrence: None)
  Receive Date: 20120622
  Receipt Date: 20120621
  Transmission Date: 20120825
  Serious: Yes (Death, Hospitalization, Other)
  Sender: FDA-Public Use
  Company Number: PHHY2012NL039433

PATIENT
  Sex: Female
  Weight: 72 kg

DRUGS (5)
  1. PANTOPRAZOLE [Concomitant]
     Dosage: 40 MG, UNK
     Route: 048
  2. FENTANYL [Concomitant]
     Dosage: 25 UKN, UNK
  3. ZOMETA [Suspect]
     Dosage: 4 MG/100ML INFUSION
     Dates: start: 20120402
  4. ZOMETA [Suspect]
     Indication: METASTASES TO BONE
     Dosage: 4MG/100ML INFUSION
     Dates: start: 20111019
  5. DOMPERIDONE [Concomitant]
     Dosage: UNK UKN, PRN
     Route: 048

REACTIONS (7)
  - METASTASES TO LIVER [None]
  - PAIN [None]
  - DECREASED APPETITE [None]
  - HYPOPHAGIA [None]
  - NAUSEA [None]
  - MALAISE [None]
  - BLOOD TEST ABNORMAL [None]
